FAERS Safety Report 4615363-1 (Version None)
Quarter: 2005Q1

REPORT INFORMATION
  Report Type: 
  Country: None (occurrence: None)
  Receive Date: 20050317
  Receipt Date: 20050315
  Transmission Date: 20050727
  Serious: Yes (Other)
  Sender: FDA-Public Use
  Company Number: 211678

PATIENT

DRUGS (4)
  1. MABTHERA (RITUXIMAB) CONC FOR SOLUTION FOR INFUSION [Suspect]
  2. HYDROCORTISONE [Suspect]
  3. PIRITON (CHLORPHENIRAMINE MALEATE) [Concomitant]
  4. ANALGESIC NOS (ANALGESIC NOS) [Concomitant]

REACTIONS (1)
  - ANAPHYLACTIC REACTION [None]
